FAERS Safety Report 9892070 (Version 2)
Quarter: 2014Q2

REPORT INFORMATION
  Report Type: Spontaneous
  Country: US (occurrence: US)
  Receive Date: 20140212
  Receipt Date: 20140616
  Transmission Date: 20141212
  Serious: Yes (Hospitalization)
  Sender: FDA-Public Use
  Company Number: US-GLAXOSMITHKLINE-A1060532A

PATIENT
  Age: 72 Year
  Sex: Male

DRUGS (4)
  1. ADVAIR HFA [Suspect]
     Indication: CHRONIC OBSTRUCTIVE PULMONARY DISEASE
     Dosage: 1PUFF TWICE PER DAY
     Route: 055
     Dates: start: 20130703
  2. VENTOLIN [Suspect]
     Indication: CHRONIC OBSTRUCTIVE PULMONARY DISEASE
     Dosage: 2PUFF AS REQUIRED
     Route: 055
     Dates: start: 20130703
  3. BLOOD PRESSURE MEDICATION [Concomitant]
  4. CHOLESTEROL REDUCING AGENT [Concomitant]

REACTIONS (6)
  - Lung neoplasm malignant [Unknown]
  - Cardiac disorder [Unknown]
  - Back disorder [Unknown]
  - Adrenalectomy [Recovered/Resolved]
  - Malaise [Unknown]
  - Off label use [Unknown]
